FAERS Safety Report 17767110 (Version 2)
Quarter: 2020Q2

REPORT INFORMATION
  Report Type: Spontaneous
  Country: DE (occurrence: DE)
  Receive Date: 20200511
  Receipt Date: 20200514
  Transmission Date: 20200714
  Serious: Yes (Death, Hospitalization, Other)
  Sender: FDA-Public Use
  Company Number: DE-MYLANLABS-2020M1046527

PATIENT
  Age: 76 Year
  Sex: Female
  Weight: 100 kg

DRUGS (8)
  1. TORASEMIDE [Suspect]
     Active Substance: TORSEMIDE
     Indication: PRODUCT USED FOR UNKNOWN INDICATION
     Dosage: 20 MILLIGRAM, QD,1-1-0
     Route: 048
  2. MOXONIDIN [Concomitant]
     Active Substance: MOXONIDINE
     Dosage: 0.3 MILLIGRAM, BID,1-0-1
     Route: 048
  3. METFORMIN [Interacting]
     Active Substance: METFORMIN HYDROCHLORIDE
     Indication: TYPE 2 DIABETES MELLITUS
     Dosage: 500 MILLIGRAM, BID,2X500MG
     Route: 048
  4. LEVOTHYROXINE SODIUM. [Concomitant]
     Active Substance: LEVOTHYROXINE SODIUM
     Dosage: 88 MICROGRAM, QD,1-0-0
     Route: 048
  5. LERCANIDIPINE [Concomitant]
     Active Substance: LERCANIDIPINE
     Dosage: 20 MILLIGRAM, QD,0-1-0
     Route: 048
  6. NEBIVOLOL HYDROCHLORIDE [Concomitant]
     Active Substance: NEBIVOLOL HYDROCHLORIDE
     Dosage: 5 MILLIGRAM, QD,1-0-0
     Route: 048
  7. ASPIRIN. [Concomitant]
     Active Substance: ASPIRIN
     Dosage: 100 MILLIGRAM, QD,1-0-0
     Route: 048
  8. CANDESARTAN. [Concomitant]
     Active Substance: CANDESARTAN
     Dosage: 8 MILLIGRAM, QD,1-0-0
     Route: 048

REACTIONS (3)
  - Lactic acidosis [Fatal]
  - Drug interaction [Unknown]
  - Abdominal pain upper [Unknown]

NARRATIVE: CASE EVENT DATE: 20200331
